FAERS Safety Report 8848371 (Version 1)
Quarter: 2012Q4

REPORT INFORMATION
  Report Type: 
  Country: CA (occurrence: CA)
  Receive Date: 20121018
  Receipt Date: 20121018
  Transmission Date: 20130627
  Serious: Yes (Hospitalization, Other)
  Sender: FDA-Public Use
  Company Number: PHHO2005CA13521

PATIENT
  Age: 66 Year
  Sex: Female

DRUGS (9)
  1. SANDOSTATIN LAR [Suspect]
     Indication: RECTAL CANCER
     Dosage: 30mg every 4 weeks
     Dates: start: 20050609
  2. SANDOSTATIN LAR [Suspect]
     Dosage: 20 mg, QMO
  3. CHEMOTHERAPEUTICS,OTHER [Concomitant]
  4. CALCIUM [Concomitant]
  5. DOMPERIDONE [Concomitant]
  6. IMODIUM [Concomitant]
  7. MAGNESIUM [Concomitant]
  8. PANTOLOC [Concomitant]
  9. POTASSIUM [Concomitant]

REACTIONS (10)
  - Hypotension [Unknown]
  - Diarrhoea [Not Recovered/Not Resolved]
  - Dehydration [Unknown]
  - Weight decreased [Unknown]
  - Blood potassium decreased [Unknown]
  - Haemoglobin decreased [Unknown]
  - Thirst [Unknown]
  - Decreased appetite [Recovered/Resolved]
  - Tachycardia [Unknown]
  - Hyperglycaemia [Unknown]
